FAERS Safety Report 10244284 (Version 2)
Quarter: 2014Q4

REPORT INFORMATION
  Report Type: Spontaneous
  Country: FR (occurrence: None)
  Receive Date: 20140616
  Receipt Date: 20141029
  Transmission Date: 20150528
  Serious: Yes (Hospitalization)
  Sender: FDA-Public Use
  Company Number: AXC-2014-000366

PATIENT
  Sex: Female

DRUGS (3)
  1. PYLERA [Suspect]
     Active Substance: BISMUTH SUBCITRATE POTASSIUM\METRONIDAZOLE\TETRACYCLINE HYDROCHLORIDE
     Indication: HELICOBACTER GASTRITIS
     Dosage: 3 DF
     Route: 048
     Dates: start: 201405, end: 201405
  2. OMEPRAZOLE (OMEPRAZOLE) [Concomitant]
     Active Substance: OMEPRAZOLE
  3. LEXOMIL (BROMAZEPAM) [Concomitant]
     Active Substance: BROMAZEPAM
     Dosage: UNK, PUNCTUAL, NOT TAKEN REGULARLY, UNKNOWN

REACTIONS (6)
  - Epilepsy [None]
  - Aspartate aminotransferase increased [None]
  - Blood creatine phosphokinase increased [None]
  - Generalised tonic-clonic seizure [None]
  - Postictal state [None]
  - Rhabdomyolysis [None]

NARRATIVE: CASE EVENT DATE: 201405
